FAERS Safety Report 15666084 (Version 1)
Quarter: 2018Q4

REPORT INFORMATION
  Report Type: Spontaneous
  Country: US (occurrence: US)
  Receive Date: 20181128
  Receipt Date: 20181128
  Transmission Date: 20190205
  Serious: Yes (Other)
  Sender: FDA-Public Use
  Company Number: None

PATIENT
  Age: 90 Year
  Sex: Male
  Weight: 58.05 kg

DRUGS (4)
  1. DEGARELIX [Concomitant]
     Active Substance: DEGARELIX
  2. ZYTIGA [Suspect]
     Active Substance: ABIRATERONE ACETATE
     Indication: PROSTATE CANCER
     Route: 048
     Dates: start: 20180911, end: 20181128
  3. MSM [Concomitant]
     Active Substance: DIMETHYL SULFONE
  4. TRAVATAN Z [Concomitant]
     Active Substance: TRAVOPROST

REACTIONS (1)
  - Pain [None]

NARRATIVE: CASE EVENT DATE: 20181128
